FAERS Safety Report 26120897 (Version 1)
Quarter: 2025Q4

REPORT INFORMATION
  Report Type: Spontaneous
  Country: EU (occurrence: EU)
  Receive Date: 20251204
  Receipt Date: 20251204
  Transmission Date: 20260118
  Serious: Yes (Other)
  Sender: MYLAN
  Company Number: EU-MYLANLABS-2025M1102945

PATIENT
  Age: 37 Year
  Sex: Male

DRUGS (10)
  1. PREDNISONE [Suspect]
     Active Substance: PREDNISONE
     Indication: Pericarditis
     Dosage: UNK (DOSE TAPERRED)
  2. PREDNISONE [Suspect]
     Active Substance: PREDNISONE
     Dosage: 20 MILLIGRAM, BID
  3. ANAKINRA [Concomitant]
     Active Substance: ANAKINRA
     Indication: Pericarditis
     Dosage: UNK
  4. ANAKINRA [Concomitant]
     Active Substance: ANAKINRA
     Dosage: UNK, RESTARTED
  5. METHYLPREDNISOLONE [Concomitant]
     Active Substance: METHYLPREDNISOLONE
     Indication: Pericarditis
     Dosage: UNK
  6. INDOMETHACIN [Concomitant]
     Active Substance: INDOMETHACIN
     Indication: Pericarditis
     Dosage: UNK
  7. COLCHICINE [Concomitant]
     Active Substance: COLCHICINE
     Indication: Pericarditis
     Dosage: UNK
  8. TOCILIZUMAB [Concomitant]
     Active Substance: TOCILIZUMAB
     Indication: Pericarditis
     Dosage: 162 MILLIGRAM, QW
     Dates: start: 202501
  9. Immunoglobulin [Concomitant]
     Indication: Pericarditis
     Dosage: 400 MILLIGRAM/KILOGRAM, QD
     Dates: start: 202412
  10. FLECAINIDE [Concomitant]
     Active Substance: FLECAINIDE
     Indication: Atrial fibrillation
     Dosage: UNK

REACTIONS (1)
  - Steroid dependence [Unknown]

NARRATIVE: CASE EVENT DATE: 20240101
